FAERS Safety Report 23430012 (Version 1)
Quarter: 2024Q1

REPORT INFORMATION
  Report Type: Spontaneous
  Country: US (occurrence: US)
  Receive Date: 20240122
  Receipt Date: 20240122
  Transmission Date: 20240410
  Serious: No
  Sender: FDA-Public Use
  Company Number: US-009507513-2401USA007940

PATIENT
  Age: 5 Year

DRUGS (1)
  1. SIVEXTRO [Suspect]
     Active Substance: TEDIZOLID PHOSPHATE
     Dosage: 2.5MG PER KILO/ IV Q12 HOURS
     Route: 042

REACTIONS (4)
  - Incorrect dose administered [Unknown]
  - Product administered to patient of inappropriate age [Unknown]
  - Inappropriate schedule of product administration [Unknown]
  - No adverse event [Unknown]
